FAERS Safety Report 22390516 (Version 1)
Quarter: 2023Q2

REPORT INFORMATION
  Report Type: Spontaneous
  Country: DE (occurrence: DE)
  Receive Date: 20230531
  Receipt Date: 20230531
  Transmission Date: 20230721
  Serious: Yes (Other)
  Sender: FDA-Public Use
  Company Number: DE-ANIPHARMA-2023-DE-000089

PATIENT
  Age: 75 Year
  Sex: Female

DRUGS (1)
  1. CANDESARTAN CILEXETIL [Suspect]
     Active Substance: CANDESARTAN CILEXETIL
     Indication: Hypertension
     Dosage: 4 MG DAILY / 1-0-0 / 1-0-1
     Route: 048
     Dates: start: 20230119

REACTIONS (9)
  - Headache [Recovering/Resolving]
  - Product substitution issue [Recovering/Resolving]
  - Drug ineffective [Recovering/Resolving]
  - Malaise [Recovering/Resolving]
  - Tinnitus [Recovering/Resolving]
  - Blood pressure fluctuation [Recovering/Resolving]
  - Tremor [Recovering/Resolving]
  - Loss of personal independence in daily activities [Recovering/Resolving]
  - Drug ineffective [Recovering/Resolving]
